FAERS Safety Report 7646616-0 (Version None)
Quarter: 2011Q3

REPORT INFORMATION
  Report Type: 
  Country: None (occurrence: None)
  Receive Date: 20110729
  Receipt Date: 20110729
  Transmission Date: 20111222
  Serious: Yes (Other)
  Sender: FDA-Public Use
  Company Number: None

PATIENT
  Sex: Female
  Weight: 79.3795 kg

DRUGS (1)
  1. VENLAFAXINE [Suspect]
     Indication: ANXIETY
     Dosage: 150MG QD PO
     Route: 048
     Dates: start: 20110709, end: 20110719

REACTIONS (5)
  - CONDITION AGGRAVATED [None]
  - NAUSEA [None]
  - HEADACHE [None]
  - HOT FLUSH [None]
  - ANXIETY [None]
